FAERS Safety Report 22607119 (Version 2)
Quarter: 2023Q2

REPORT INFORMATION
  Report Type: Spontaneous
  Country: US (occurrence: US)
  Receive Date: 20230615
  Receipt Date: 20230619
  Transmission Date: 20230722
  Serious: No
  Sender: FDA-Public Use
  Company Number: US-SLATE RUN PHARMACEUTICALS-23US001625

PATIENT

DRUGS (4)
  1. BUPROPION HYDROCHLORIDE [Suspect]
     Active Substance: BUPROPION HYDROCHLORIDE
     Indication: Seasonal affective disorder
     Dosage: 150 MILLIGRAM, MORNING
     Route: 048
     Dates: start: 202211
  2. BUPROPION HYDROCHLORIDE [Suspect]
     Active Substance: BUPROPION HYDROCHLORIDE
     Indication: Depression
  3. BUPROPION [Suspect]
     Active Substance: BUPROPION
     Indication: Seasonal affective disorder
     Dosage: 75 MILLIGRAM
     Route: 048
  4. BUPROPION [Suspect]
     Active Substance: BUPROPION
     Indication: Depression

REACTIONS (2)
  - Fatigue [Not Recovered/Not Resolved]
  - Somnolence [Not Recovered/Not Resolved]

NARRATIVE: CASE EVENT DATE: 20230501
